FAERS Safety Report 4777938-9 (Version None)
Quarter: 2005Q3

REPORT INFORMATION
  Report Type: 
  Country: None (occurrence: None)
  Receive Date: 20050922
  Receipt Date: 20041119
  Transmission Date: 20060218
  Serious: Yes (Hospitalization)
  Sender: FDA-Public Use
  Company Number: 25667

PATIENT
  Age: 65 Year
  Sex: Female

DRUGS (8)
  1. NORFLEX [Suspect]
     Indication: BACK DISORDER
     Dosage: 100 MG 1 IN 1 DAY(S), ORAL
     Route: 048
     Dates: start: 20041019
  2. NORFLEX [Suspect]
     Indication: NECK INJURY
     Dosage: 100 MG 1 IN 1 DAY(S), ORAL
     Route: 048
     Dates: start: 20041019
  3. NORFLEX [Suspect]
     Indication: SURGERY
     Dosage: 100 MG 1 IN 1 DAY(S), ORAL
     Route: 048
     Dates: start: 20041019
  4. LANOXIN [Suspect]
  5. ASPIRIN [Suspect]
  6. ATENOLOL [Suspect]
  7. LASIX [Suspect]
  8. XANAX [Suspect]

REACTIONS (2)
  - ANGINA PECTORIS [None]
  - ANXIETY [None]
